FAERS Safety Report 23852798 (Version 1)
Quarter: 2024Q2

REPORT INFORMATION
  Report Type: Spontaneous
  Country: US (occurrence: None)
  Receive Date: 20240513
  Receipt Date: 20240513
  Transmission Date: 20240716
  Serious: Yes (Life-Threatening, Hospitalization, Other)
  Sender: FDA-Public Use
  Company Number: None

PATIENT
  Age: 61 Year
  Sex: Female
  Weight: 69.3 kg

DRUGS (1)
  1. RECLAST [Suspect]
     Active Substance: ZOLEDRONIC ACID
     Indication: Osteoarthritis
     Route: 042
     Dates: start: 20231212, end: 20231223

REACTIONS (10)
  - Pyrexia [None]
  - Dyspnoea [None]
  - Refusal of treatment by patient [None]
  - Agitation [None]
  - Vision blurred [None]
  - Dizziness [None]
  - Paraesthesia [None]
  - Tremor [None]
  - Rash [None]
  - Speech disorder [None]

NARRATIVE: CASE EVENT DATE: 20231212
